FAERS Safety Report 24622781 (Version 2)
Quarter: 2025Q3

REPORT INFORMATION
  Report Type: Report from Study
  Country: US (occurrence: US)
  Receive Date: 20241115
  Receipt Date: 20250809
  Transmission Date: 20251021
  Serious: Yes (Hospitalization)
  Sender: ALEXION PHARMACEUTICALS
  Company Number: US-AstraZeneca-CH-00744139A

PATIENT
  Sex: Female

DRUGS (1)
  1. OLAPARIB [Suspect]
     Active Substance: OLAPARIB

REACTIONS (6)
  - Diarrhoea [Unknown]
  - Blood magnesium decreased [Unknown]
  - Hernia [Unknown]
  - Oedema peripheral [Unknown]
  - Weight increased [Unknown]
  - Constipation [Unknown]
